FAERS Safety Report 6858821-1 (Version None)
Quarter: 2010Q3

REPORT INFORMATION
  Report Type: 
  Country: None (occurrence: None)
  Receive Date: 20100719
  Receipt Date: 20080212
  Transmission Date: 20110219
  Serious: No
  Sender: FDA-Public Use
  Company Number: US-PFIZER INC-2008014836

PATIENT
  Sex: Female
  Weight: 52.6 kg

DRUGS (1)
  1. CHANTIX [Suspect]
     Indication: SMOKING CESSATION THERAPY
     Dates: start: 20080202

REACTIONS (3)
  - ANXIETY [None]
  - FEELING JITTERY [None]
  - MEDICATION ERROR [None]
